FAERS Safety Report 5676653-7 (Version None)
Quarter: 2008Q1

REPORT INFORMATION
  Report Type: 
  Country: None (occurrence: None)
  Receive Date: 20080324
  Receipt Date: 20080313
  Transmission Date: 20080703
  Serious: Yes (Other)
  Sender: FDA-Public Use
  Company Number: CA-JNJFOC-20080303891

PATIENT
  Sex: Male

DRUGS (2)
  1. REMICADE [Suspect]
     Indication: PSORIATIC ARTHROPATHY
     Dosage: INITIAL INFUSION, IN 250 ML OF NORMAL SALINE
     Route: 042
  2. UNSPECIFIED MEDICATION [Concomitant]
     Indication: PREMEDICATION
     Route: 048

REACTIONS (2)
  - CHILLS [None]
  - PYREXIA [None]
